FAERS Safety Report 9716430 (Version 1)
Quarter: 2013Q4

REPORT INFORMATION
  Report Type: Spontaneous
  Country: US (occurrence: None)
  Receive Date: 20131126
  Receipt Date: 20131126
  Transmission Date: 20140711
  Serious: No
  Sender: FDA-Public Use
  Company Number: None

PATIENT
  Age: 50 Year
  Sex: Male
  Weight: 70.9 kg

DRUGS (1)
  1. GEMCITABINE [Suspect]
     Dates: end: 20131118

REACTIONS (7)
  - Back pain [None]
  - Abdominal pain [None]
  - Nausea [None]
  - Vomiting [None]
  - Pancreatitis acute [None]
  - Pancreatic enlargement [None]
  - Peripancreatic fluid collection [None]
